FAERS Safety Report 15736629 (Version 1)
Quarter: 2018Q4

REPORT INFORMATION
  Report Type: Spontaneous
  Country: US (occurrence: US)
  Receive Date: 20181204
  Receipt Date: 20181204
  Transmission Date: 20190205
  Serious: Yes (Hospitalization)
  Sender: FDA-Public Use
  Company Number: None

PATIENT
  Sex: Male

DRUGS (14)
  1. CARVEDILOL 3.125MG [Concomitant]
  2. PERCOCET 5-325MG [Concomitant]
  3. ALK-SELTZER 325MG [Concomitant]
  4. VITAMIN B50 [Concomitant]
  5. ASPIRIN 81MG EC [Concomitant]
  6. VITAMIN C 500MG [Concomitant]
  7. VITAMIN D3 2000UNIT [Concomitant]
  8. AMBIEN CR 12.5MG [Concomitant]
  9. ACIDOPHILUS [Concomitant]
     Active Substance: LACTOBACILLUS ACIDOPHILUS
  10. CENTRUM SILVER [Concomitant]
     Active Substance: MINERALS\VITAMINS
  11. REPATHA [Suspect]
     Active Substance: EVOLOCUMAB
     Indication: HYPERLIPIDAEMIA
     Dosage: ?          OTHER FREQUENCY:Q 2 WEEKS;?
     Route: 058
     Dates: start: 20170617
  12. VITAMIN B COMPLEX [Concomitant]
     Active Substance: CYANOCOBALAMIN\DEXPANTHENOL\NIACINAMIDE\PYRIDOXINE HYDROCHLORIDE\RIBOFLAVIN 5^-PHOSPHATE SODIUM\THIAMINE HYDROCHLORIDE\VITAMIN B COMPLEX
  13. FOLIC ACID 1MG [Concomitant]
  14. HYDRALAZINE 10MG [Concomitant]
     Active Substance: HYDRALAZINE HYDROCHLORIDE

REACTIONS (1)
  - Myocardial infarction [None]
